FAERS Safety Report 7538605-1 (Version None)
Quarter: 2011Q2

REPORT INFORMATION
  Report Type: 
  Country: None (occurrence: None)
  Receive Date: 20110610
  Receipt Date: 20110531
  Transmission Date: 20111010
  Serious: No
  Sender: FDA-Public Use
  Company Number: US-BIOGENIDEC-2011BI020669

PATIENT
  Age: 42 Year
  Sex: Female

DRUGS (24)
  1. ELAVIL [Concomitant]
     Route: 048
  2. GABAPENTIN [Concomitant]
     Route: 048
  3. ADDERALL XR 10 [Concomitant]
     Route: 048
  4. LYRICA [Concomitant]
     Route: 048
  5. IMIPRAMINE HCL [Concomitant]
     Route: 048
  6. ZOLOFT [Concomitant]
     Route: 048
  7. NUVIGIL [Concomitant]
     Route: 048
  8. MAXZIDE-25 [Concomitant]
     Route: 048
  9. TYSABRI [Suspect]
     Indication: MULTIPLE SCLEROSIS
     Route: 042
     Dates: start: 20080312
  10. REBIF [Concomitant]
     Indication: MULTIPLE SCLEROSIS
     Dates: start: 20080101
  11. CHANTIX [Concomitant]
     Route: 048
  12. WELLBUTRIN SR [Concomitant]
     Route: 048
  13. AVONEX [Concomitant]
     Route: 030
     Dates: start: 20000601
  14. PROVIGIL [Concomitant]
     Route: 048
  15. LIPITOR [Concomitant]
     Route: 048
  16. COPAXONE [Concomitant]
     Indication: MULTIPLE SCLEROSIS
     Route: 058
     Dates: start: 20051001, end: 20080101
  17. KLONOPIN [Concomitant]
     Route: 048
  18. TUSSIONEX PENNKINETIC ER [Concomitant]
     Route: 048
  19. PRAMIPEXOLE DIHYDROCHLORIDE [Concomitant]
     Route: 048
  20. OXYCONTIN [Concomitant]
     Route: 048
  21. AVONEX [Concomitant]
     Indication: MULTIPLE SCLEROSIS
     Route: 030
  22. SYNTHROID [Concomitant]
     Route: 048
  23. EFFEXOR XR [Concomitant]
     Route: 048
  24. AMBIEN [Concomitant]
     Route: 048

REACTIONS (3)
  - DYSURIA [None]
  - CANDIDIASIS [None]
  - PRODUCTIVE COUGH [None]
